FAERS Safety Report 16545005 (Version 1)
Quarter: 2019Q3

REPORT INFORMATION
  Report Type: Spontaneous
  Country: DE (occurrence: DE)
  Receive Date: 20190709
  Receipt Date: 20190709
  Transmission Date: 20191004
  Serious: Yes (Other)
  Sender: FDA-Public Use
  Company Number: DE-MYLANLABS-2019M1062302

PATIENT
  Age: 76 Year
  Sex: Female
  Weight: 63 kg

DRUGS (4)
  1. BISOPROLOL [Concomitant]
     Active Substance: BISOPROLOL
     Dosage: DAILY DOSE: 2.5 MG MILLGRAM(S) EVERY DAYS
  2. ELIQUIS [Concomitant]
     Active Substance: APIXABAN
     Dosage: DAILY DOSE: 10 MG MILLGRAM(S) EVERY DAYS
  3. AMIODARONE [Suspect]
     Active Substance: AMIODARONE
     Indication: PRODUCT USED FOR UNKNOWN INDICATION
     Dosage: DAILY DOSE: 200 MG MILLGRAM(S) EVERY DAYS
  4. RAMIPRIL. [Concomitant]
     Active Substance: RAMIPRIL
     Dosage: DAILY DOSE: 2.5 MG MILLGRAM(S) EVERY DAYS

REACTIONS (3)
  - Aphasia [Recovered/Resolved]
  - Bradyphrenia [Recovered/Resolved]
  - Tremor [Recovered/Resolved]

NARRATIVE: CASE EVENT DATE: 201806
